FAERS Safety Report 10140473 (Version 1)
Quarter: 2014Q2

REPORT INFORMATION
  Report Type: Spontaneous
  Country: US (occurrence: US)
  Receive Date: 20140429
  Receipt Date: 20140429
  Transmission Date: 20141212
  Serious: No
  Sender: FDA-Public Use
  Company Number: US-009507513-1404USA014988

PATIENT
  Age: 15 Year
  Sex: Male

DRUGS (2)
  1. CLARITIN [Suspect]
     Indication: SEASONAL ALLERGY
     Dosage: 10 MG, ONCE
     Route: 048
     Dates: start: 20140413
  2. CLARITIN [Suspect]
     Dosage: UNK, PRN
     Route: 048

REACTIONS (3)
  - Skin mass [Recovering/Resolving]
  - Pruritus [Recovering/Resolving]
  - Throat irritation [Recovered/Resolved]
